FAERS Safety Report 4630633-9 (Version None)
Quarter: 2005Q2

REPORT INFORMATION
  Report Type: 
  Country: None (occurrence: None)
  Receive Date: 20050408
  Receipt Date: 20031118
  Transmission Date: 20051028
  Serious: Yes (Hospitalization)
  Sender: FDA-Public Use
  Company Number: PL-BRISTOL-MYERS SQUIBB COMPANY-12438289

PATIENT
  Age: 50 Year
  Sex: Female

DRUGS (8)
  1. CISPLATIN [Suspect]
     Indication: NON-SMALL CELL LUNG CANCER
     Route: 042
     Dates: start: 20030709, end: 20030825
  2. PACLITAXEL [Suspect]
     Indication: NON-SMALL CELL LUNG CANCER
     Route: 042
     Dates: start: 20030709, end: 20030825
  3. HYDROCORTISONE [Concomitant]
     Indication: STEROID THERAPY
     Dates: start: 20000101
  4. INSULIN [Concomitant]
     Indication: DIABETES MELLITUS
     Dates: start: 19970101
  5. ISOSORBIDE MONONITRATE [Concomitant]
     Indication: CORONARY ARTERY DISEASE
     Dates: start: 19980101
  6. BISOPROLOL FUMARATE [Concomitant]
     Indication: CORONARY ARTERY DISEASE
     Dates: start: 19980101
  7. QUINAPRIL [Concomitant]
     Indication: CORONARY ARTERY DISEASE
     Dates: start: 19980101
  8. MORPHINE [Concomitant]
     Indication: BACK PAIN
     Dates: start: 20030606

REACTIONS (9)
  - COUGH [None]
  - DEHYDRATION [None]
  - DISEASE PROGRESSION [None]
  - METASTASES TO LIVER [None]
  - METASTASES TO PLEURA [None]
  - METASTASES TO THE MEDIASTINUM [None]
  - NAUSEA [None]
  - PNEUMONIA [None]
  - VOMITING [None]
